FAERS Safety Report 7053040-0 (Version None)
Quarter: 2010Q4

REPORT INFORMATION
  Report Type: 
  Country: None (occurrence: None)
  Receive Date: 20101020
  Receipt Date: 20101008
  Transmission Date: 20110411
  Serious: Yes (Hospitalization)
  Sender: FDA-Public Use
  Company Number: US-ELI_LILLY_AND_COMPANY-US201010002842

PATIENT
  Age: 72 Year
  Sex: Female

DRUGS (4)
  1. HUMALOG [Suspect]
     Indication: TYPE 1 DIABETES MELLITUS
     Dosage: UNK, AS NEEDED
  2. LANTUS [Concomitant]
  3. NOVOLOG [Concomitant]
  4. INSULIN [Concomitant]
     Indication: BLOOD GLUCOSE ABNORMAL

REACTIONS (7)
  - ARTHRALGIA [None]
  - BLOOD GLUCOSE INCREASED [None]
  - DEVICE FAILURE [None]
  - FALL [None]
  - FEELING ABNORMAL [None]
  - INJURY ASSOCIATED WITH DEVICE [None]
  - MUSCLE STRAIN [None]
